FAERS Safety Report 4746276-2 (Version None)
Quarter: 2005Q3

REPORT INFORMATION
  Report Type: 
  Country: None (occurrence: None)
  Receive Date: 20050816
  Receipt Date: 20050805
  Transmission Date: 20060218
  Serious: Yes (Death, Hospitalization)
  Sender: FDA-Public Use
  Company Number: MEDI-0003045

PATIENT
  Age: 5 Month
  Sex: Male
  Weight: 5.7 kg

DRUGS (9)
  1. SYNAGIS [Suspect]
     Indication: ANTIVIRAL PROPHYLAXIS
     Dosage: SEE IMAGE
     Route: 030
     Dates: start: 20041207, end: 20050208
  2. SYNAGIS [Suspect]
     Indication: ANTIVIRAL PROPHYLAXIS
     Dosage: SEE IMAGE
     Route: 030
     Dates: start: 20050308, end: 20050308
  3. SYNAGIS [Suspect]
     Indication: ANTIVIRAL PROPHYLAXIS
     Dosage: SEE IMAGE
     Route: 030
     Dates: start: 20041207
  4. SYNAGIS [Suspect]
     Indication: ANTIVIRAL PROPHYLAXIS
     Dosage: SEE IMAGE
     Route: 030
     Dates: start: 20050104
  5. SYNAGIS [Suspect]
  6. SYNAGIS [Suspect]
  7. SYNAGIS [Suspect]
  8. DIGOXIN [Concomitant]
  9. PHENOBARBITAL TAB [Concomitant]

REACTIONS (12)
  - CERVICAL VERTEBRAL FRACTURE [None]
  - CHILD ABUSE [None]
  - CONTUSION [None]
  - HEAD INJURY [None]
  - MURDER [None]
  - MUSCLE HAEMORRHAGE [None]
  - NECK INJURY [None]
  - OPTIC NERVE SHEATH HAEMORRHAGE [None]
  - SKIN INJURY [None]
  - SPINAL EPIDURAL HAEMORRHAGE [None]
  - SUBARACHNOID HAEMORRHAGE [None]
  - URINARY TRACT INFECTION [None]
